FAERS Safety Report 13428212 (Version 4)
Quarter: 2018Q3

REPORT INFORMATION
  Report Type: Spontaneous
  Country: US (occurrence: US)
  Receive Date: 20170411
  Receipt Date: 20180703
  Transmission Date: 20181010
  Serious: No
  Sender: FDA-Public Use
  Company Number: US-ACTELION-A-US2016-131807

PATIENT
  Age: 61 Year
  Sex: Female

DRUGS (6)
  1. DICLOFENAC [Concomitant]
     Active Substance: DICLOFENAC
  2. OPSUMIT [Suspect]
     Active Substance: MACITENTAN
     Indication: PULMONARY ARTERIAL HYPERTENSION
     Dosage: 10 MG, QD
     Route: 048
     Dates: start: 201601
  3. MULTIVITAMIN [Concomitant]
     Active Substance: VITAMINS
  4. ADEMPAS [Concomitant]
     Active Substance: RIOCIGUAT
  5. ADCIRCA [Concomitant]
     Active Substance: TADALAFIL
  6. CELEBREX [Concomitant]
     Active Substance: CELECOXIB

REACTIONS (7)
  - Dyspnoea [Unknown]
  - Multiple allergies [Not Recovered/Not Resolved]
  - Nasal congestion [Unknown]
  - Rash [Recovered/Resolved]
  - Drug dose omission [Unknown]
  - Anaemia [Unknown]
  - Haemoglobin decreased [Unknown]

NARRATIVE: CASE EVENT DATE: 201801
